FAERS Safety Report 6220640-7 (Version None)
Quarter: 2009Q2

REPORT INFORMATION
  Report Type: 
  Country: None (occurrence: None)
  Receive Date: 20090610
  Receipt Date: 20090527
  Transmission Date: 20091009
  Serious: Yes (Other)
  Sender: FDA-Public Use
  Company Number: SE-ROCHE-635465

PATIENT

DRUGS (1)
  1. XENICAL [Suspect]
     Indication: OVERWEIGHT

REACTIONS (2)
  - DEATH NEONATAL [None]
  - SEPSIS [None]
